FAERS Safety Report 8120659-5 (Version None)
Quarter: 2012Q1

REPORT INFORMATION
  Report Type: 
  Country: None (occurrence: None)
  Receive Date: 20120207
  Receipt Date: 20120127
  Transmission Date: 20120608
  Serious: Yes (Other)
  Sender: FDA-Public Use
  Company Number: US-BAYER-201031218NA

PATIENT
  Age: 18 Year
  Sex: Female
  Weight: 84 kg

DRUGS (13)
  1. YAZ [Suspect]
     Indication: MENSTRUAL CYCLE MANAGEMENT
     Dosage: UNK
     Dates: start: 20071112, end: 20091101
  2. DROSPIRENONE AND ETHINYL ESTRADIOL [Suspect]
     Indication: MENSTRUAL CYCLE MANAGEMENT
     Dosage: UNK
     Route: 048
     Dates: start: 20071112, end: 20091101
  3. YASMIN [Suspect]
     Indication: MENSTRUAL CYCLE MANAGEMENT
     Dosage: UNK
     Dates: start: 20071112, end: 20091101
  4. PHENYL CHLOR-TAN [Concomitant]
  5. IBUPROFEN [Concomitant]
  6. YAZ [Suspect]
     Indication: MENORRHAGIA
  7. YASMIN [Suspect]
     Indication: MENORRHAGIA
  8. DROSPIRENONE AND ETHINYL ESTRADIOL [Suspect]
     Indication: MENORRHAGIA
     Dosage: UNK
     Dates: start: 20091016, end: 20091101
  9. IBUPROFEN (ADVIL) [Concomitant]
  10. ACIPHEX [Concomitant]
     Dosage: 20 MG, QD
     Dates: start: 20091029
  11. PRILOSEC [Concomitant]
     Dosage: 20 MG, UNK
  12. NAPROXEN (ALEVE) [Concomitant]
  13. MOTRIN [Concomitant]

REACTIONS (3)
  - CHOLECYSTITIS ACUTE [None]
  - DISCOMFORT [None]
  - ABDOMINAL PAIN UPPER [None]
